FAERS Safety Report 24142808 (Version 1)
Quarter: 2024Q3

REPORT INFORMATION
  Report Type: Spontaneous
  Country: CA (occurrence: CA)
  Receive Date: 20240726
  Receipt Date: 20240726
  Transmission Date: 20241017
  Serious: Yes (Hospitalization)
  Sender: PFIZER
  Company Number: CA-PFIZER INC-202400223897

PATIENT
  Sex: Female
  Weight: 48 kg

DRUGS (22)
  1. RITUXIMAB [Suspect]
     Active Substance: RITUXIMAB
     Indication: Diffuse large B-cell lymphoma
     Dosage: 555 MG
  2. VINCRISTINE SULFATE [Suspect]
     Active Substance: VINCRISTINE SULFATE
     Indication: Diffuse large B-cell lymphoma
     Dosage: 2 MG
  3. CYCLOPHOSPHAMIDE [Suspect]
     Active Substance: CYCLOPHOSPHAMIDE
     Indication: Diffuse large B-cell lymphoma
     Dosage: 1100 MG
  4. ETOPOSIDE [Suspect]
     Active Substance: ETOPOSIDE
     Indication: Diffuse large B-cell lymphoma
     Dosage: 74 MG
  5. ACETAMINOPHEN [Concomitant]
     Active Substance: ACETAMINOPHEN
  6. ASPIRIN [Concomitant]
     Active Substance: ASPIRIN
     Route: 065
  7. AMITRIPTYLINE [Concomitant]
     Active Substance: AMITRIPTYLINE
  8. BISOPROLOL [Concomitant]
     Active Substance: BISOPROLOL\BISOPROLOL FUMARATE
     Route: 065
  9. BREO ELLIPTA [Concomitant]
     Active Substance: FLUTICASONE FUROATE\VILANTEROL TRIFENATATE
     Route: 065
  10. FILGRASTIM [Concomitant]
     Active Substance: FILGRASTIM
  11. FLUCONAZOLE [Concomitant]
     Active Substance: FLUCONAZOLE
  12. GLYCERIN [Concomitant]
     Active Substance: GLYCERIN
  13. LEVOTHYROXINE SODIUM [Concomitant]
     Active Substance: LEVOTHYROXINE SODIUM
     Route: 065
  14. LORAZEPAM [Concomitant]
     Active Substance: LORAZEPAM
  15. METOCLOPRAMIDE [Concomitant]
     Active Substance: METOCLOPRAMIDE
  16. MORPHINE [Concomitant]
     Active Substance: MORPHINE
  17. PANTOPRAZOLE [Concomitant]
     Active Substance: PANTOPRAZOLE
  18. PERINDOPRIL ERBUMINE [Concomitant]
     Active Substance: PERINDOPRIL ERBUMINE
  19. POLYETHYLENE GLYCOL 3350 [Concomitant]
     Active Substance: POLYETHYLENE GLYCOL 3350
  20. PREDNISONE [Concomitant]
     Active Substance: PREDNISONE
  21. TERBUTALINE [Concomitant]
     Active Substance: TERBUTALINE
  22. ZOPICLONE [Concomitant]
     Active Substance: ZOPICLONE

REACTIONS (2)
  - Pneumonia parainfluenzae viral [Recovered/Resolved]
  - Febrile neutropenia [Recovered/Resolved]
